FAERS Safety Report 10959346 (Version 1)
Quarter: 2015Q1

REPORT INFORMATION
  Report Type: Spontaneous
  Country: US (occurrence: US)
  Receive Date: 20150327
  Receipt Date: 20150327
  Transmission Date: 20150721
  Serious: No
  Sender: FDA-Public Use
  Company Number: US-009507513-1503USA013136

PATIENT
  Age: 12 Year
  Sex: Male

DRUGS (2)
  1. SINGULAIR [Suspect]
     Active Substance: MONTELUKAST SODIUM
     Dosage: EACH NIGHT WHEN HE IS GOING TO BED WITH WATER OR MILK
     Route: 048
  2. CLARITIN [Suspect]
     Active Substance: LORATADINE
     Dosage: EACH NIGHT WHEN HE IS GOING TO BED WITH WATER OR MILK
     Route: 048

REACTIONS (2)
  - Wrong technique in drug usage process [Unknown]
  - Abdominal discomfort [Unknown]
